FAERS Safety Report 4899057-3 (Version None)
Quarter: 2006Q1

REPORT INFORMATION
  Report Type: 
  Country: None (occurrence: None)
  Receive Date: 20060202
  Receipt Date: 20060126
  Transmission Date: 20060701
  Serious: Yes (Hospitalization)
  Sender: FDA-Public Use
  Company Number: PHRM2006FR00635

PATIENT
  Age: 84 Year
  Sex: Female

DRUGS (7)
  1. MODOPAR [Concomitant]
     Indication: DEMENTIA
     Dosage: 12.5/50 MG X 1/DAY
     Route: 048
     Dates: start: 20000101
  2. SINEMET [Concomitant]
     Indication: DEMENTIA
     Dosage: 10/100 MG X 1/DAY
     Route: 048
     Dates: start: 20051208
  3. SINEMET [Concomitant]
     Dosage: 10/100 MG X 2/DAY
     Route: 048
  4. KALEORID [Concomitant]
     Dosage: 2 G/WEEK
     Route: 048
  5. LASILIX [Concomitant]
     Dosage: 20 MG/DAY
     Route: 048
  6. EXELON [Suspect]
     Indication: DEMENTIA
     Dosage: 1.5 MG, BID
     Route: 048
     Dates: start: 20051221, end: 20060104
  7. EXELON [Suspect]
     Dosage: 3 MG, BID
     Route: 048
     Dates: start: 20060105, end: 20060105

REACTIONS (3)
  - ABNORMAL BEHAVIOUR [None]
  - HYPERTONIA [None]
  - MUTISM [None]
